FAERS Safety Report 7792719-X (Version None)
Quarter: 2011Q3

REPORT INFORMATION
  Report Type: 
  Country: None (occurrence: None)
  Receive Date: 20110930
  Receipt Date: 20110930
  Transmission Date: 20111222
  Serious: Yes (Other)
  Sender: FDA-Public Use
  Company Number: None

PATIENT
  Age: 60 Year
  Sex: Female
  Weight: 47.6277 kg

DRUGS (1)
  1. TOPIRAMATE [Suspect]
     Indication: MIGRAINE
     Dosage: 1 TABLET ONCE A DAY FOR A WEEK THEN INCREASED TO 1 TABLET TWICE A DAY
     Dates: start: 20110621, end: 20110721

REACTIONS (2)
  - DYSPNOEA [None]
  - GAIT DISTURBANCE [None]
